FAERS Safety Report 8613842-3 (Version None)
Quarter: 2012Q3

REPORT INFORMATION
  Report Type: 
  Country: None (occurrence: None)
  Receive Date: 20120823
  Receipt Date: 20120810
  Transmission Date: 20120928
  Serious: No
  Sender: FDA-Public Use
  Company Number: US-BIOGENIDEC-2012BI032534

PATIENT
  Age: 62 Year
  Sex: Female
  Weight: 72 kg

DRUGS (13)
  1. VESICARE [Concomitant]
     Indication: PRODUCT USED FOR UNKNOWN INDICATION
     Route: 048
  2. ASCORBIC ACID [Concomitant]
  3. THIAMINE HYDROCHLORIDE [Concomitant]
  4. MINERALS (NOS) [Concomitant]
  5. AVONEX [Suspect]
     Indication: PRODUCT USED FOR UNKNOWN INDICATION
     Route: 030
     Dates: start: 20110101, end: 20110101
  6. NICOTINAMIDE [Concomitant]
  7. RETINOL [Concomitant]
  8. AMPYRA [Concomitant]
     Indication: GAIT DISTURBANCE
     Route: 048
     Dates: start: 20110101
  9. VITAMIN D [Concomitant]
  10. TIZANIDINE HYDROCHLORIDE [Concomitant]
  11. PROZAC [Concomitant]
  12. VITAMIN E [Concomitant]
  13. RIBOFLAVIN CAP [Concomitant]

REACTIONS (2)
  - ALOPECIA [None]
  - MADAROSIS [None]
